FAERS Safety Report 10042379 (Version 1)
Quarter: 2014Q1

REPORT INFORMATION
  Report Type: Spontaneous
  Country: ES (occurrence: ES)
  Receive Date: 20140327
  Receipt Date: 20140327
  Transmission Date: 20141002
  Serious: Yes (Other)
  Sender: FDA-Public Use
  Company Number: ES-BAYER-2014-046488

PATIENT
  Sex: Female

DRUGS (5)
  1. ASPIRINA 500 MG COMPRIMIDOS EFERVESCENTES [Suspect]
     Indication: PERICARDITIS
     Dosage: 4 G, DAILY DOSE
  2. SINGULAIR [Concomitant]
  3. OMEPRAZOL [Concomitant]
  4. IRON [Concomitant]
  5. COLCHICINA [Concomitant]
     Dosage: UNK

REACTIONS (4)
  - Deafness [None]
  - Ototoxicity [None]
  - Tinnitus [None]
  - Inner ear disorder [None]
